FAERS Safety Report 15541360 (Version 1)
Quarter: 2018Q4

REPORT INFORMATION
  Report Type: Spontaneous
  Country: FR (occurrence: FR)
  Receive Date: 20181023
  Receipt Date: 20181023
  Transmission Date: 20190205
  Serious: Yes (Hospitalization)
  Sender: FDA-Public Use
  Company Number: FR-PFIZER INC-2018414696

PATIENT
  Age: 60 Year
  Sex: Female
  Weight: 95 kg

DRUGS (2)
  1. BACTRIM [Suspect]
     Active Substance: SULFAMETHOXAZOLE\TRIMETHOPRIM
     Indication: INFECTION
     Dosage: 3200 MG, 1X/DAY
     Route: 042
     Dates: start: 20180608, end: 20180619
  2. CLINDAMYCIN PHOSPHATE. [Suspect]
     Active Substance: CLINDAMYCIN PHOSPHATE
     Indication: INFECTION
     Dosage: 1800 MG, 1X/DAY
     Route: 042
     Dates: start: 20180525, end: 20180620

REACTIONS (5)
  - Purpura [Recovered/Resolved]
  - Hyperferritinaemia [Recovered/Resolved]
  - Hypertriglyceridaemia [Recovered/Resolved]
  - Haemophagocytic lymphohistiocytosis [Recovered/Resolved]
  - Pancytopenia [Recovered/Resolved]

NARRATIVE: CASE EVENT DATE: 20180619
